FAERS Safety Report 18215831 (Version 2)
Quarter: 2020Q4

REPORT INFORMATION
  Report Type: Other
  Country: SG (occurrence: SG)
  Receive Date: 20200831
  Receipt Date: 20201130
  Transmission Date: 20210113
  Serious: Yes (Hospitalization)
  Sender: FDA-Public Use
  Company Number: SG-ROCHE-2665726

PATIENT
  Age: 43 Year
  Sex: Male

DRUGS (6)
  1. HYDROCORTISONE. [Concomitant]
     Active Substance: HYDROCORTISONE
     Indication: SHOCK
     Dosage: RECEIVED HYDROCORTISONE BETWEEN DAYS 2 AND 5.
  2. TOCILIZUMAB. [Suspect]
     Active Substance: TOCILIZUMAB
     Indication: COVID-19
     Route: 042
  3. NOREPINEPHRINE. [Concomitant]
     Active Substance: NOREPINEPHRINE
     Indication: SHOCK
     Dosage: MAX 0.28 MCG/KG/MIN ON DAY 2, STOPPED BY DAY 9 OF HOSPITALISATION.
  4. TOCILIZUMAB. [Suspect]
     Active Substance: TOCILIZUMAB
     Indication: CYTOKINE RELEASE SYNDROME
  5. HEPARIN [Concomitant]
     Active Substance: HEPARIN SODIUM
     Dosage: WAS STARTED ON DAY 2 OF HOSPITALISATION AND CONTINUED UNTIL DAY 17.
  6. VASOPRESSIN. [Concomitant]
     Active Substance: VASOPRESSIN
     Indication: SHOCK
     Dosage: MAX 0.03 UNITS/MIN ON DAY 2, STOPPED ON DAY 3 OF HOSPITALISATION.

REACTIONS (9)
  - Ileal ulcer [Unknown]
  - Gastrointestinal mucosa hyperaemia [Unknown]
  - Intestinal ulcer [Unknown]
  - Large intestinal ulcer perforation [Unknown]
  - Colitis [Unknown]
  - Large intestinal haemorrhage [Unknown]
  - Off label use [Unknown]
  - Intentional product use issue [Unknown]
  - Intestinal haemorrhage [Unknown]
